FAERS Safety Report 8914318 (Version 1)
Quarter: 2012Q4

REPORT INFORMATION
  Report Type: 
  Country: GB (occurrence: GB)
  Receive Date: 20121118
  Receipt Date: 20121118
  Transmission Date: 20130627
  Serious: Yes (Other)
  Sender: FDA-Public Use
  Company Number: GB-MYLANLABS-2012S1023082

PATIENT
  Age: 75 Year
  Sex: Female

DRUGS (4)
  1. TERBINAFINE [Suspect]
     Indication: RASH
     Dates: start: 1995
  2. TERBINAFINE [Suspect]
     Indication: RASH
  3. TERBINAFINE [Suspect]
     Indication: RASH
  4. DAKTARIN [Suspect]
     Indication: PRODUCT USED FOR UNKNOWN INDICATION

REACTIONS (13)
  - Hypersensitivity [Unknown]
  - Anxiety [Unknown]
  - Discomfort [Unknown]
  - Emotional distress [Unknown]
  - Inflammation [Unknown]
  - Pruritus [Unknown]
  - Rash [Unknown]
  - Tinea infection [Unknown]
  - Insomnia [Unknown]
  - Suicidal ideation [Unknown]
  - Hyperhidrosis [Unknown]
  - Candidiasis [Unknown]
  - Lower respiratory tract infection [Unknown]
